FAERS Safety Report 18581339 (Version 2)
Quarter: 2020Q4

REPORT INFORMATION
  Report Type: Spontaneous
  Country: FI (occurrence: FI)
  Receive Date: 20201204
  Receipt Date: 20201215
  Transmission Date: 20210114
  Serious: Yes (Life-Threatening)
  Sender: FDA-Public Use
  Company Number: FI-MYLANLABS-2020M1099771

PATIENT
  Age: 60 Year
  Sex: Female

DRUGS (4)
  1. ABSENOR                            /00228501/ [Concomitant]
     Indication: SCHIZOPHRENIA
     Dosage: 2000 MILLIGRAM, QD (2000 MG, QD)
     Route: 048
     Dates: start: 2000
  2. PEGORION [Concomitant]
     Active Substance: POLYETHYLENE GLYCOL 4000
     Indication: CONSTIPATION PROPHYLAXIS
     Dosage: 12 GRAM, QD (12 G, QD)
     Route: 048
     Dates: start: 20200831
  3. LEPONEX [Suspect]
     Active Substance: CLOZAPINE
     Indication: SCHIZOPHRENIA
     Dosage: 250 MILLIGRAM, QD (250 MG, QD)
     Route: 048
     Dates: start: 20200921, end: 20201007
  4. OLANZAPIN ORION [Concomitant]
     Active Substance: OLANZAPINE
     Indication: SCHIZOPHRENIA
     Dosage: 10 MILLIGRAM, QD (10 MG, QD)
     Route: 048
     Dates: start: 2000

REACTIONS (11)
  - Urinary incontinence [Not Recovered/Not Resolved]
  - SARS-CoV-2 test negative [Not Recovered/Not Resolved]
  - Dizziness [Not Recovered/Not Resolved]
  - Pyrexia [Not Recovered/Not Resolved]
  - Sepsis [Not Recovered/Not Resolved]
  - Myocardial depression [Not Recovered/Not Resolved]
  - Eosinophilic pneumonia [Not Recovered/Not Resolved]
  - Fatigue [Not Recovered/Not Resolved]
  - Opportunistic infection [Not Recovered/Not Resolved]
  - Confusional state [Not Recovered/Not Resolved]
  - Candida infection [Not Recovered/Not Resolved]

NARRATIVE: CASE EVENT DATE: 20201004
